FAERS Safety Report 7242180-9 (Version None)
Quarter: 2011Q1

REPORT INFORMATION
  Report Type: 
  Country: None (occurrence: None)
  Receive Date: 20110124
  Receipt Date: 20110120
  Transmission Date: 20110831
  Serious: Yes (Other)
  Sender: FDA-Public Use
  Company Number: US-AMGEN-USASP2011003625

PATIENT
  Age: 77 Year
  Sex: Male

DRUGS (2)
  1. NPLATE [Suspect]
     Indication: IDIOPATHIC THROMBOCYTOPENIC PURPURA
     Dosage: 3 A?G/KG, UNK
     Dates: start: 20100205, end: 20100219
  2. CORTICOSTEROIDS [Concomitant]
     Dosage: UNK A?G, UNK

REACTIONS (3)
  - THROMBOCYTOPENIA [None]
  - DRUG INEFFECTIVE [None]
  - LEUKOPENIA [None]
